FAERS Safety Report 6781468-2 (Version None)
Quarter: 2010Q2

REPORT INFORMATION
  Report Type: 
  Country: None (occurrence: None)
  Receive Date: 20100621
  Receipt Date: 20100607
  Transmission Date: 20101027
  Serious: Yes (Other)
  Sender: FDA-Public Use
  Company Number: US-BAYER-201024919NA

PATIENT
  Sex: Female

DRUGS (1)
  1. YASMIN [Suspect]
     Indication: THERAPEUTIC PROCEDURE
     Route: 048

REACTIONS (2)
  - HEADACHE [None]
  - NERVOUS SYSTEM DISORDER [None]
